FAERS Safety Report 6738294-X (Version None)
Quarter: 2010Q2

REPORT INFORMATION
  Report Type: 
  Country: None (occurrence: None)
  Receive Date: 20100524
  Receipt Date: 20100517
  Transmission Date: 20101027
  Serious: Yes (Other)
  Sender: FDA-Public Use
  Company Number: B0656709A

PATIENT
  Age: 11 Year
  Sex: Male
  Weight: 49 kg

DRUGS (4)
  1. AUGMENTIN '125' [Suspect]
     Indication: ACUTE TONSILLITIS
     Dosage: 1125MG PER DAY
     Route: 065
     Dates: start: 20100304, end: 20100310
  2. CHLOROPYRAMINE [Concomitant]
     Indication: ACUTE TONSILLITIS
     Route: 065
     Dates: start: 20100303, end: 20100308
  3. HEXETIDINE [Concomitant]
     Indication: ACUTE TONSILLITIS
     Route: 065
     Dates: start: 20100303, end: 20100308
  4. UNKNOWN [Concomitant]
     Indication: ACUTE TONSILLITIS

REACTIONS (3)
  - PRURITUS [None]
  - RASH [None]
  - URTICARIA [None]
